FAERS Safety Report 6944478-8 (Version None)
Quarter: 2010Q3

REPORT INFORMATION
  Report Type: 
  Country: None (occurrence: None)
  Receive Date: 20100827
  Receipt Date: 20100816
  Transmission Date: 20110219
  Serious: Yes (Other)
  Sender: FDA-Public Use
  Company Number: US-PFIZER INC-2010098199

PATIENT
  Sex: Male
  Weight: 111 kg

DRUGS (9)
  1. CHANTIX [Suspect]
     Indication: SMOKING CESSATION THERAPY
     Dosage: UNK
     Route: 048
     Dates: start: 20100715
  2. CHANTIX [Suspect]
     Dosage: UNK
     Route: 048
     Dates: start: 20100715
  3. TRAZODONE HCL [Suspect]
     Indication: SEDATIVE THERAPY
     Dosage: 50 MG, AS NEEDED
  4. ABILIFY [Suspect]
     Indication: BIPOLAR I DISORDER
     Dosage: 15 MG, 1X/DAY
     Route: 048
  5. BENZTROPINE MESYLATE [Concomitant]
     Dosage: UNK
  6. ASCORBIC ACID [Concomitant]
     Dosage: UNK
  7. VITAMIN B-12 [Concomitant]
     Dosage: UNK
  8. VITAMIN D [Concomitant]
     Dosage: UNK
  9. DIVALPROEX SODIUM [Concomitant]
     Indication: BIPOLAR I DISORDER
     Dosage: 1500 MG, 1X/DAY
     Route: 048

REACTIONS (5)
  - AGITATION [None]
  - ANXIETY [None]
  - INSOMNIA [None]
  - PSYCHOMOTOR HYPERACTIVITY [None]
  - STRESS [None]
